FAERS Safety Report 9235812 (Version 5)
Quarter: 2014Q2

REPORT INFORMATION
  Report Type: Spontaneous
  Country: IE (occurrence: IE)
  Receive Date: 20130417
  Receipt Date: 20140612
  Transmission Date: 20141212
  Serious: Yes (Death, Other)
  Sender: FDA-Public Use
  Company Number: PHFR2013IE002220

PATIENT
  Age: 61 Year
  Sex: Female
  Weight: 56 kg

DRUGS (11)
  1. CLOZARIL [Suspect]
     Indication: SCHIZOAFFECTIVE DISORDER
     Dosage: UNK
     Dates: start: 20070726
  2. CLOZARIL [Suspect]
     Dosage: UNK
     Dates: start: 20100715
  3. CLOZARIL [Suspect]
     Dosage: 350 MG, UNK
     Route: 048
  4. SOLIAN [Suspect]
     Indication: SCHIZOAFFECTIVE DISORDER
     Dosage: 400 MG, UNK
     Route: 048
  5. CHLORPROMAZINE [Suspect]
     Indication: SCHIZOAFFECTIVE DISORDER
     Dosage: 100 MG, UNK
     Route: 048
  6. MOLIPAXIN [Suspect]
     Indication: SCHIZOAFFECTIVE DISORDER
     Dosage: 350 MG, UNK
     Route: 048
  7. EPILIM CHRONO [Concomitant]
     Dosage: 800 MG, UNK
     Route: 048
  8. NOVOMIX [Concomitant]
     Indication: DIABETES MELLITUS
     Dosage: 28 IU, UNK
     Route: 058
  9. DETRUSITOL [Concomitant]
     Indication: INCONTINENCE
     Dosage: 4 MG, UNK
     Route: 048
  10. FLURAZEPAM [Concomitant]
     Indication: INSOMNIA
     Dosage: 30 MG, UNK
     Route: 048
  11. NEXIUM [Concomitant]
     Indication: GASTRITIS
     Dosage: 40 MG, UNK
     Route: 048

REACTIONS (12)
  - Asphyxia [Fatal]
  - Choking [Fatal]
  - Foreign body [Fatal]
  - Tubulointerstitial nephritis [Fatal]
  - Antipsychotic drug level above therapeutic [Fatal]
  - Cholelithiasis [Fatal]
  - Chronic obstructive pulmonary disease [Fatal]
  - Megacolon [Fatal]
  - Renal failure chronic [Fatal]
  - Aspiration [Fatal]
  - Fall [Unknown]
  - Oesophageal disorder [Not Recovered/Not Resolved]
